FAERS Safety Report 8887337 (Version 2)
Quarter: 2013Q1

REPORT INFORMATION
  Report Type: Spontaneous
  Country: US (occurrence: US)
  Receive Date: 20121105
  Receipt Date: 20130219
  Transmission Date: 20140127
  Serious: Yes (Hospitalization)
  Sender: FDA-Public Use
  Company Number: US-GILEAD-2012-0064082

PATIENT
  Age: 68 Year
  Sex: Female

DRUGS (10)
  1. LETAIRIS [Suspect]
     Indication: PULMONARY ARTERIAL HYPERTENSION
     Dosage: 10 MG, QD
     Route: 048
     Dates: start: 200801
  2. NORVASC [Concomitant]
  3. ATIVAN [Concomitant]
  4. EFFEXOR XR [Concomitant]
  5. CELEXA                             /00582602/ [Concomitant]
  6. TRAZODONE [Concomitant]
  7. DIGOXIN [Concomitant]
  8. LASIX                              /00032601/ [Concomitant]
  9. K-TAB [Concomitant]
  10. TRIAMTERENE AND HYDROCHLOROTHIAZID [Concomitant]

REACTIONS (4)
  - Cerebrovascular accident [Unknown]
  - Atrial fibrillation [Unknown]
  - VIIth nerve paralysis [Unknown]
  - Muscular weakness [Unknown]
